FAERS Safety Report 15216892 (Version 1)
Quarter: 2018Q3

REPORT INFORMATION
  Report Type: Report from Study
  Country: FR (occurrence: FR)
  Receive Date: 20180730
  Receipt Date: 20180730
  Transmission Date: 20181010
  Serious: Yes (Hospitalization, Other)
  Sender: FDA-Public Use
  Company Number: FR-TEVA-2018-FR-931961

PATIENT
  Age: 75 Year
  Sex: Female
  Weight: 50 kg

DRUGS (9)
  1. AVASTIN [Suspect]
     Active Substance: BEVACIZUMAB
     Route: 065
     Dates: start: 20161030
  2. AVASTIN [Suspect]
     Active Substance: BEVACIZUMAB
     Route: 065
     Dates: start: 20160926
  3. IRINOTECAN HOSPIRA [Suspect]
     Active Substance: IRINOTECAN
     Route: 065
     Dates: start: 20161030
  4. FLUOROURACIL. [Suspect]
     Active Substance: FLUOROURACIL
     Indication: COLORECTAL CANCER METASTATIC
     Route: 065
     Dates: start: 20160829
  5. FLUOROURACIL. [Suspect]
     Active Substance: FLUOROURACIL
     Route: 065
     Dates: start: 20160926
  6. IRINOTECAN HOSPIRA [Suspect]
     Active Substance: IRINOTECAN
     Route: 065
     Dates: start: 20160926
  7. FLUOROURACIL. [Suspect]
     Active Substance: FLUOROURACIL
     Route: 065
     Dates: start: 20161030
  8. AVASTIN [Suspect]
     Active Substance: BEVACIZUMAB
     Route: 065
     Dates: start: 20160829
  9. IRINOTECAN HOSPIRA [Suspect]
     Active Substance: IRINOTECAN
     Indication: COLORECTAL CANCER METASTATIC
     Route: 065
     Dates: start: 20160829

REACTIONS (9)
  - Flank pain [Recovered/Resolved]
  - Fatigue [Recovered/Resolved]
  - Abdominal pain [Unknown]
  - Muscle spasms [Unknown]
  - Abdominal tenderness [Recovered/Resolved]
  - Vomiting [Recovered/Resolved]
  - Diarrhoea [Recovered/Resolved]
  - Nausea [Recovered/Resolved]
  - Diarrhoea [Recovered/Resolved]

NARRATIVE: CASE EVENT DATE: 20160902
